FAERS Safety Report 6020157-9 (Version None)
Quarter: 2008Q4

REPORT INFORMATION
  Report Type: 
  Country: None (occurrence: None)
  Receive Date: 20081226
  Receipt Date: 20080909
  Transmission Date: 20090506
  Serious: Yes (Other)
  Sender: FDA-Public Use
  Company Number: PHHY2008BR31251

PATIENT
  Sex: Female
  Weight: 110 kg

DRUGS (5)
  1. DICLOFENAC POTASSIUM [Suspect]
  2. AGASTEN [Suspect]
     Indication: HYPERSENSITIVITY
     Dosage: 1 ML/DAY
     Dates: start: 20080908
  3. CALCIUM OD [Suspect]
  4. CORTISONE ACETATE TAB [Concomitant]
     Indication: PRURITUS
     Dosage: 4 TAB/DAY
     Route: 048
  5. CORTISONE ACETATE TAB [Concomitant]
     Indication: SWELLING FACE

REACTIONS (7)
  - DEFORMITY [None]
  - EYE SWELLING [None]
  - HYPERSENSITIVITY [None]
  - HYPOAESTHESIA ORAL [None]
  - LIP SWELLING [None]
  - PRURITUS [None]
  - SWELLING FACE [None]
